FAERS Safety Report 22256224 (Version 1)
Quarter: 2023Q2

REPORT INFORMATION
  Report Type: Report from Study
  Country: US (occurrence: US)
  Receive Date: 20230426
  Receipt Date: 20230426
  Transmission Date: 20230722
  Serious: Yes (Other)
  Sender: FDA-Public Use
  Company Number: US-002147023-NVSC2023US089881

PATIENT
  Sex: Female

DRUGS (2)
  1. MOMETASONE [Suspect]
     Active Substance: MOMETASONE
     Indication: Psoriasis
     Dosage: 1 %
     Route: 061
  2. MOMETASONE [Suspect]
     Active Substance: MOMETASONE
     Dosage: UNK, QD (QD X2 WEEKS PRN)
     Route: 065

REACTIONS (5)
  - Sweat gland tumour [Unknown]
  - Psoriatic arthropathy [Unknown]
  - Pain [Recovered/Resolved]
  - Maternal exposure during pregnancy [Unknown]
  - Drug ineffective [Unknown]
